FAERS Safety Report 6821729-1 (Version None)
Quarter: 2010Q3

REPORT INFORMATION
  Report Type: 
  Country: None (occurrence: None)
  Receive Date: 20100702
  Receipt Date: 20100622
  Transmission Date: 20110219
  Serious: Yes (Other)
  Sender: FDA-Public Use
  Company Number: 7004050

PATIENT
  Age: 50 Year
  Sex: Female

DRUGS (2)
  1. REBIF [Suspect]
     Indication: MULTIPLE SCLEROSIS
     Dosage: 8.8 MCG, 3 IN 1 WK, SUBCUTANEOUS, 22 MCG, 3 IN WK, SUBCUTANEOUS
     Route: 058
     Dates: start: 20100303, end: 20100101
  2. REBIF [Suspect]
     Indication: MULTIPLE SCLEROSIS
     Dosage: 8.8 MCG, 3 IN 1 WK, SUBCUTANEOUS, 22 MCG, 3 IN WK, SUBCUTANEOUS
     Route: 058
     Dates: start: 20100101

REACTIONS (3)
  - BREAST CANCER FEMALE [None]
  - MENTAL DISORDER [None]
  - POSTMENOPAUSE [None]
